FAERS Safety Report 14350326 (Version 1)
Quarter: 2018Q1

REPORT INFORMATION
  Report Type: Spontaneous
  Country: CA (occurrence: CA)
  Receive Date: 20180104
  Receipt Date: 20180104
  Transmission Date: 20180509
  Serious: Yes (Other)
  Sender: FDA-Public Use
  Company Number: CA-TEVA-2018-CA-843507

PATIENT
  Age: 16 Month
  Sex: Female

DRUGS (5)
  1. CHLORAL HYDRATE [Suspect]
     Active Substance: CHLORAL HYDRATE
     Indication: SEDATION
     Dosage: 10MG/KG LOADING DOSE
     Route: 050
  2. DEXAMETHASONE. [Suspect]
     Active Substance: DEXAMETHASONE
     Indication: CROUP INFECTIOUS
     Dosage: EVERY SIX HOURS FOR 3 DAYS
     Route: 065
  3. IBUPROFEN. [Suspect]
     Active Substance: IBUPROFEN
     Indication: CROUP INFECTIOUS
     Dosage: EVERY SIX HOURS FOR 3 DAYS
     Route: 065
  4. MORPHINE [Concomitant]
     Active Substance: MORPHINE
     Indication: SEDATION
     Route: 050
  5. CHLORAL HYDRATE [Suspect]
     Active Substance: CHLORAL HYDRATE
     Indication: SEDATION
     Dosage: 50MG/ML SOLUTION AT A RATE OF 5MG/KG/HOUR
     Route: 050

REACTIONS (2)
  - Duodenal ulcer perforation [Unknown]
  - Duodenal ulcer [Unknown]
